FAERS Safety Report 20381597 (Version 1)
Quarter: 2022Q1

REPORT INFORMATION
  Report Type: Spontaneous
  Country: US (occurrence: US)
  Receive Date: 20220127
  Receipt Date: 20220127
  Transmission Date: 20220423
  Serious: No
  Sender: FDA-Public Use
  Company Number: US-BAYER-2022A013764

PATIENT
  Sex: Female

DRUGS (1)
  1. MIRALAX [Suspect]
     Active Substance: POLYETHYLENE GLYCOL 3350
     Indication: Gastrointestinal disorder
     Dosage: 1 TABLESPOON
     Route: 048
     Dates: start: 202201, end: 202201

REACTIONS (3)
  - Diarrhoea [None]
  - Incorrect dose administered [None]
  - Incorrect product administration duration [None]

NARRATIVE: CASE EVENT DATE: 20220101
